FAERS Safety Report 4650232-2 (Version None)
Quarter: 2005Q2

REPORT INFORMATION
  Report Type: 
  Country: None (occurrence: None)
  Receive Date: 20050428
  Receipt Date: 20050415
  Transmission Date: 20051028
  Serious: Yes (Other)
  Sender: FDA-Public Use
  Company Number: HQWYE111319APR05

PATIENT
  Sex: Female

DRUGS (5)
  1. PREMPRO [Suspect]
  2. ESTROGENS (ESTROGENS) [Suspect]
  3. MEDROXYPROGESTERONE ACETATE [Suspect]
  4. PREMARIN [Suspect]
  5. PROVERA [Suspect]

REACTIONS (2)
  - BREAST CANCER FEMALE [None]
  - LUNG NEOPLASM MALIGNANT [None]
